FAERS Safety Report 7425747-4 (Version None)
Quarter: 2011Q2

REPORT INFORMATION
  Report Type: 
  Country: None (occurrence: None)
  Receive Date: 20110418
  Receipt Date: 20110418
  Transmission Date: 20111010
  Serious: Yes (Hospitalization, Other)
  Sender: FDA-Public Use
  Company Number: None

PATIENT
  Age: 65 Year
  Sex: Female
  Weight: 61.2356 kg

DRUGS (1)
  1. DEXILANT [Suspect]
     Indication: GASTROOESOPHAGEAL REFLUX DISEASE
     Dosage: 1 CAPSULE 1XDAY PO
     Route: 048
     Dates: start: 20110414, end: 20110414

REACTIONS (6)
  - HEART RATE DECREASED [None]
  - RASH GENERALISED [None]
  - DYSPNOEA [None]
  - ASTHENIA [None]
  - PRURITUS [None]
  - BODY TEMPERATURE DECREASED [None]
